FAERS Safety Report 11923794 (Version 1)
Quarter: 2016Q1

REPORT INFORMATION
  Report Type: Spontaneous
  Country: CN (occurrence: CN)
  Receive Date: 20160118
  Receipt Date: 20160118
  Transmission Date: 20160526
  Serious: Yes (Death, Other)
  Sender: FDA-Public Use
  Company Number: CN-CIPLA LTD.-2016CN00091

PATIENT

DRUGS (12)
  1. PACLITAXEL. [Suspect]
     Active Substance: PACLITAXEL
     Indication: NON-SMALL CELL LUNG CANCER
     Dosage: 300 MG ON DAY 1 OF EACH 2-WEEK CYCLE FOR 6 CYCLES
     Route: 065
     Dates: start: 20070528, end: 20070912
  2. DOCETAXEL. [Suspect]
     Active Substance: DOCETAXEL
     Dosage: 140 MG IV ON DAY 1 FOR CYCLES 3 AND 4
     Route: 042
     Dates: start: 20100123, end: 20100220
  3. ERLOTINIB [Suspect]
     Active Substance: ERLOTINIB
     Indication: NON-SMALL CELL LUNG CANCER
     Dosage: 150 MG, QD
     Route: 048
     Dates: start: 200807, end: 200912
  4. GEFITINIB [Suspect]
     Active Substance: GEFITINIB
     Indication: NON-SMALL CELL LUNG CANCER
     Dosage: UNK
     Route: 048
     Dates: start: 201006
  5. DICYCLOPLATIN [Suspect]
     Active Substance: INVESTIGATIONAL PRODUCT
     Indication: NON-SMALL CELL LUNG CANCER
     Dosage: 750 MG ON DAY 1 OF EACH 2-WEEK CYCLE FOR 6 CYCLES
     Route: 065
     Dates: start: 20070528, end: 20070912
  6. CARBOPLATIN. [Suspect]
     Active Substance: CARBOPLATIN
     Dosage: 500 MG IV ON DAY 1 FOR CYCLES 3 AND 4
     Route: 042
     Dates: start: 20100123, end: 20100220
  7. DOCETAXEL. [Suspect]
     Active Substance: DOCETAXEL
     Indication: NON-SMALL CELL LUNG CANCER
     Dosage: 140 MG IV ON DAY 1 FOR CYCLES 1 AND 2
     Route: 042
     Dates: start: 20091211, end: 20100103
  8. CISPLATIN. [Suspect]
     Active Substance: CISPLATIN
     Indication: NON-SMALL CELL LUNG CANCER
  9. CARBOPLATIN. [Suspect]
     Active Substance: CARBOPLATIN
     Indication: NON-SMALL CELL LUNG CANCER
     Dosage: 500 MG IV ON DAY 1 FOR CYCLES 1 AND 2
     Route: 042
     Dates: start: 20091211, end: 20100103
  10. CISPLATIN. [Suspect]
     Active Substance: CISPLATIN
     Indication: DISEASE PROGRESSION
     Dosage: 50 MG ON DAYS 1 AND 2, 40 MG ON DAY 3, EVERY 2 WEEKS CYCLE. FOR FIRST 12 CYCLES,140 MG ON DAY 1
     Route: 065
     Dates: start: 20080226, end: 20080614
  11. PEMETREXED DISODIUM [Suspect]
     Active Substance: PEMETREXED DISODIUM
     Indication: DISEASE PROGRESSION
     Dosage: 1,000 MG ON DAY 1 EVERY 2 WEEKS CYCLE
     Route: 065
     Dates: start: 20080226, end: 20080614
  12. PEMETREXED DISODIUM [Suspect]
     Active Substance: PEMETREXED DISODIUM
     Indication: NON-SMALL CELL LUNG CANCER

REACTIONS (10)
  - Metastases to central nervous system [Unknown]
  - Metastases to liver [Unknown]
  - Lung infection [Fatal]
  - Vomiting [Unknown]
  - Disease recurrence [Unknown]
  - Cachexia [Fatal]
  - Bone marrow failure [Unknown]
  - Nausea [Unknown]
  - Cytopenia [Unknown]
  - Gastrointestinal toxicity [Unknown]
